FAERS Safety Report 25970682 (Version 2)
Quarter: 2025Q4

REPORT INFORMATION
  Report Type: Spontaneous
  Country: EU (occurrence: EU)
  Receive Date: 20251028
  Receipt Date: 20251119
  Transmission Date: 20260118
  Serious: Yes (Other)
  Sender: TAIHO ONCOLOGY INC
  Company Number: EU-TAIHOP-2025-011605

PATIENT
  Age: 41 Year
  Sex: Male

DRUGS (4)
  1. LYTGOBI [Suspect]
     Active Substance: FUTIBATINIB
     Indication: Cholangiocarcinoma
     Dosage: UNKNOWN DOSE AND FREQUENCY
     Route: 048
  2. PEMAZYRE [Suspect]
     Active Substance: PEMIGATINIB
     Indication: Cholangiocarcinoma
     Route: 048
  3. LENVATINIB [Suspect]
     Active Substance: LENVATINIB
     Indication: Cholangiocarcinoma
     Route: 048
  4. LENVATINIB [Suspect]
     Active Substance: LENVATINIB
     Route: 048
     Dates: start: 202405

REACTIONS (6)
  - Metastasis [Unknown]
  - Ascites [Unknown]
  - Cholangiocarcinoma [Unknown]
  - Disease progression [Unknown]
  - FGFR2 gene mutation [Unknown]
  - Transaminases increased [Recovering/Resolving]
